FAERS Safety Report 13306961 (Version 1)
Quarter: 2017Q1

REPORT INFORMATION
  Report Type: Spontaneous
  Country: US (occurrence: US)
  Receive Date: 20170308
  Receipt Date: 20170308
  Transmission Date: 20170428
  Serious: No
  Sender: FDA-Public Use
  Company Number: US-AKORN PHARMACEUTICALS-2016AKN00611

PATIENT
  Sex: Female

DRUGS (3)
  1. MYORISAN [Suspect]
     Active Substance: ISOTRETINOIN
     Indication: ACNE
     Dosage: 20 MG, 1X/DAY ALONG WITH 30 MG OF CLARAVIS FOR A TOTAL DAILY DOSE OF 50 MG
     Route: 048
     Dates: start: 20160629, end: 20160907
  2. MYORISAN [Suspect]
     Active Substance: ISOTRETINOIN
     Indication: ACNE
     Dosage: 40 MG, 1X/DAY
     Route: 048
     Dates: start: 20160525, end: 20160629
  3. CLARAVIS [Suspect]
     Active Substance: ISOTRETINOIN
     Indication: ACNE
     Dosage: 30 MG, 1X/DAY ALONG WITH 20 MG OF MYORISAN 20 MG FOR A TOTAL DOSE OF 50 MG ONCE DAILY
     Route: 048
     Dates: start: 20160629, end: 20160907

REACTIONS (3)
  - Headache [Unknown]
  - Arthralgia [Unknown]
  - Myalgia [Unknown]

NARRATIVE: CASE EVENT DATE: 2016
